FAERS Safety Report 14591318 (Version 1)
Quarter: 2018Q1

REPORT INFORMATION
  Report Type: Spontaneous
  Country: US (occurrence: US)
  Receive Date: 20180301
  Receipt Date: 20180301
  Transmission Date: 20180509
  Serious: Yes (Death, Disabling)
  Sender: FDA-Public Use
  Company Number: None

PATIENT
  Age: 66 Year
  Sex: Male
  Weight: 90 kg

DRUGS (1)
  1. ETANERCEPT [Suspect]
     Active Substance: ETANERCEPT
     Route: 058
     Dates: start: 20070124, end: 20171114

REACTIONS (10)
  - Night sweats [None]
  - Central nervous system lesion [None]
  - Weight decreased [None]
  - Fall [None]
  - Demyelination [None]
  - Chills [None]
  - Personality change [None]
  - Hypoaesthesia [None]
  - Asthenia [None]
  - Pyrexia [None]

NARRATIVE: CASE EVENT DATE: 20171114
